FAERS Safety Report 24077575 (Version 1)
Quarter: 2024Q3

REPORT INFORMATION
  Report Type: Spontaneous
  Country: US (occurrence: US)
  Receive Date: 20240711
  Receipt Date: 20240711
  Transmission Date: 20241017
  Serious: No
  Sender: AMGEN
  Company Number: US-AMGEN-USASP2024136697

PATIENT

DRUGS (8)
  1. REPATHA [Suspect]
     Active Substance: EVOLOCUMAB
     Indication: Product used for unknown indication
     Dosage: UNK UNK, Q3WK
     Route: 065
  2. LIPITOR [Concomitant]
     Active Substance: ATORVASTATIN CALCIUM
  3. CRESTOR [Concomitant]
     Active Substance: ROSUVASTATIN CALCIUM
  4. EZETIMIBE [Concomitant]
     Active Substance: EZETIMIBE
     Dosage: UNK
  5. NEXLETOL [Concomitant]
     Active Substance: BEMPEDOIC ACID
  6. LIVALO [Concomitant]
     Active Substance: PITAVASTATIN CALCIUM
  7. DIETARY SUPPLEMENT [Concomitant]
     Active Substance: DIETARY SUPPLEMENT
  8. FISH OIL [Concomitant]
     Active Substance: FISH OIL

REACTIONS (5)
  - Back pain [Unknown]
  - Arthralgia [Unknown]
  - Myalgia [Unknown]
  - Dizziness [Unknown]
  - Off label use [Unknown]
